FAERS Safety Report 18726434 (Version 2)
Quarter: 2021Q1

REPORT INFORMATION
  Report Type: Spontaneous
  Country: DE (occurrence: DE)
  Receive Date: 20210111
  Receipt Date: 20210112
  Transmission Date: 20210419
  Serious: Yes (Other)
  Sender: FDA-Public Use
  Company Number: DE-B.I. PHARMACEUTICALS,INC./RIDGEFIELD-2021-BI-074084

PATIENT
  Age: 73 Year
  Sex: Male

DRUGS (4)
  1. VARGATEF [Suspect]
     Active Substance: NINTEDANIB
     Indication: EGFR GENE MUTATION
  2. DOCETAXEL. [Suspect]
     Active Substance: DOCETAXEL
     Indication: LUNG ADENOCARCINOMA
  3. DOCETAXEL. [Suspect]
     Active Substance: DOCETAXEL
     Indication: EGFR GENE MUTATION
  4. VARGATEF [Suspect]
     Active Substance: NINTEDANIB
     Indication: LUNG ADENOCARCINOMA

REACTIONS (1)
  - Disease progression [Unknown]
